FAERS Safety Report 10180898 (Version 2)
Quarter: 2014Q4

REPORT INFORMATION
  Report Type: Spontaneous
  Country: US (occurrence: US)
  Receive Date: 20140519
  Receipt Date: 20141006
  Transmission Date: 20150528
  Serious: No
  Sender: FDA-Public Use
  Company Number: US-AMGEN INC.-USASP2014007148

PATIENT
  Age: 59 Year
  Sex: Female

DRUGS (2)
  1. PROLIA [Suspect]
     Active Substance: DENOSUMAB
     Indication: OSTEOPOROSIS POSTMENOPAUSAL
     Dosage: UNK
     Route: 065
     Dates: start: 20140105
  2. CALCIUM [Concomitant]
     Active Substance: CALCIUM

REACTIONS (10)
  - Pain [Unknown]
  - Skin discolouration [Unknown]
  - Balance disorder [Unknown]
  - Pruritus [Unknown]
  - Back pain [Unknown]
  - Myalgia [Unknown]
  - Rash macular [Unknown]
  - Musculoskeletal pain [Unknown]
  - Aphthous stomatitis [Unknown]
  - Muscle strain [Unknown]

NARRATIVE: CASE EVENT DATE: 2014
